FAERS Safety Report 4812629-7 (Version None)
Quarter: 2005Q4

REPORT INFORMATION
  Report Type: 
  Country: None (occurrence: None)
  Receive Date: 20051028
  Receipt Date: 20041102
  Transmission Date: 20060501
  Serious: Yes (Hospitalization)
  Sender: FDA-Public Use
  Company Number: US-GLAXOSMITHKLINE-A0532502A

PATIENT
  Age: 59 Year
  Sex: Female

DRUGS (9)
  1. ADVAIR DISKUS 100/50 [Suspect]
     Indication: ASTHMA
     Dosage: 1PUFF TWICE PER DAY
     Route: 055
     Dates: start: 20041007
  2. ATIVAN [Concomitant]
  3. COMBIVENT [Concomitant]
  4. SINGULAIR [Concomitant]
  5. DYAZIDE [Concomitant]
  6. ZYRTEC [Concomitant]
  7. NASACORT [Concomitant]
  8. LEXAPRO [Concomitant]
  9. HALCION [Concomitant]

REACTIONS (2)
  - COLD SWEAT [None]
  - DYSPNOEA [None]
